FAERS Safety Report 9513451 (Version 1)
Quarter: 2013Q3

REPORT INFORMATION
  Report Type: Spontaneous
  Country: US (occurrence: US)
  Receive Date: 20130910
  Receipt Date: 20130910
  Transmission Date: 20140515
  Serious: No
  Sender: FDA-Public Use
  Company Number: US-TARO-2013P1001380

PATIENT
  Age: 63 Year
  Sex: Female
  Weight: 54.43 kg

DRUGS (8)
  1. WARFARIN SODIUM TABLETS USP 2.5MG [Suspect]
     Route: 048
     Dates: start: 201301
  2. WARFARIN SODIUM TABLETS USP 2.5MG [Suspect]
     Route: 048
     Dates: start: 201209, end: 201301
  3. WARFARIN SODIUM TABLETS USP 3MG [Suspect]
     Route: 048
     Dates: start: 201209, end: 201301
  4. WARFARIN SODIUM TABLETS USP 3MG [Suspect]
     Route: 048
     Dates: start: 201301
  5. LISINOPRIL [Concomitant]
  6. VITAMIN C [Concomitant]
  7. XANAX [Concomitant]
  8. UNSPECIFIED BLOOD PRESSURE MEDICATION [Concomitant]

REACTIONS (6)
  - Contusion [Not Recovered/Not Resolved]
  - Pain [Not Recovered/Not Resolved]
  - Paraesthesia [Not Recovered/Not Resolved]
  - Intra-abdominal haemorrhage [Recovered/Resolved]
  - Blood urine present [Recovered/Resolved]
  - Musculoskeletal chest pain [Not Recovered/Not Resolved]
